FAERS Safety Report 4972790-0 (Version None)
Quarter: 2006Q2

REPORT INFORMATION
  Report Type: 
  Country: None (occurrence: None)
  Receive Date: 20060410
  Receipt Date: 20060331
  Transmission Date: 20061013
  Serious: Yes (Hospitalization, Other)
  Sender: FDA-Public Use
  Company Number: US-2005-026720

PATIENT
  Age: 51 Year
  Sex: Female
  Weight: 58 kg

DRUGS (15)
  1. CAMPATH 30/MABCAMPATH (CAMPATH 30 /1ML) (ALEMTUZUMAB) VIAL [Suspect]
     Indication: GRAFT VERSUS HOST DISEASE
     Dosage: 30 MG, 1 DOSE, INTRAVENOUS; SEE IMAGE
     Route: 042
     Dates: start: 20051119, end: 20051119
  2. CAMPATH 30/MABCAMPATH (CAMPATH 30 /1ML) (ALEMTUZUMAB) VIAL [Suspect]
     Indication: GRAFT VERSUS HOST DISEASE
     Dosage: 30 MG, 1 DOSE, INTRAVENOUS; SEE IMAGE
     Route: 042
     Dates: start: 20051202, end: 20051202
  3. CYCLOSPORINE [Suspect]
     Indication: PROPHYLAXIS AGAINST TRANSPLANT REJECTION
     Dosage: 75 MG, 1X/DAY AM, ORAL; SEE IMAGE
     Route: 048
     Dates: start: 20050927, end: 20051201
  4. CYCLOSPORINE [Suspect]
     Indication: PROPHYLAXIS AGAINST TRANSPLANT REJECTION
     Dosage: 75 MG, 1X/DAY AM, ORAL; SEE IMAGE
     Route: 048
     Dates: start: 20050927, end: 20051201
  5. PREVACID [Concomitant]
  6. ACYCLOVIR [Concomitant]
  7. NORVASC /DEN/ (ACLODIPINE BESILATE) [Concomitant]
  8. LEVOTHYROXINE SODIUM [Concomitant]
  9. ZYPREXA [Concomitant]
  10. PAXIL [Concomitant]
  11. HALDOL [Concomitant]
  12. ATIVAN [Concomitant]
  13. CIPROFLOXACIN [Concomitant]
  14. FLUCONAZOLE VS VORICONAZOLE (RANDOMIZED DOUBLE-BLIND STUDY) [Concomitant]
  15. ADALAT [Concomitant]

REACTIONS (7)
  - CENTRAL PONTINE MYELINOLYSIS [None]
  - CONFUSIONAL STATE [None]
  - DEMYELINATION [None]
  - ENCEPHALITIS [None]
  - ISCHAEMIA [None]
  - RENAL FAILURE ACUTE [None]
  - THERAPEUTIC AGENT TOXICITY [None]
